FAERS Safety Report 12812542 (Version 2)
Quarter: 2016Q4

REPORT INFORMATION
  Report Type: Spontaneous
  Country: US (occurrence: US)
  Receive Date: 20161005
  Receipt Date: 20161013
  Transmission Date: 20170207
  Serious: Yes (Other)
  Sender: FDA-Public Use
  Company Number: US-BAYER-2016-189246

PATIENT
  Age: 55 Year
  Sex: Male

DRUGS (1)
  1. MAGNEVIST [Suspect]
     Active Substance: GADOPENTETATE DIMEGLUMINE
     Dosage: 20 ML, ONCE
     Dates: start: 20160817, end: 20160817

REACTIONS (8)
  - Ocular hyperaemia [None]
  - Urticaria [None]
  - Nasal congestion [None]
  - Blood pressure increased [None]
  - Erythema [None]
  - Pharyngeal oedema [None]
  - Pruritus [None]
  - Chest pain [None]

NARRATIVE: CASE EVENT DATE: 20160817
